FAERS Safety Report 8990743 (Version 1)
Quarter: 2012Q4

REPORT INFORMATION
  Report Type: Spontaneous
  Country: US (occurrence: None)
  Receive Date: 20121226
  Receipt Date: 20121226
  Transmission Date: 20130627
  Serious: Yes (Hospitalization)
  Sender: FDA-Public Use
  Company Number: None

PATIENT
  Age: 73 Year
  Sex: Female
  Weight: 89.1 kg

DRUGS (18)
  1. FORTEO [Suspect]
     Indication: OSTEOPOROSIS
     Dosage: 600mcg  daily  Sub Q
     Route: 058
     Dates: start: 20121020
  2. AMLODIPINE [Concomitant]
  3. ASPIRIN [Concomitant]
  4. ATACAND [Concomitant]
  5. CALCIUM [Concomitant]
  6. DIAZEPAM [Concomitant]
  7. FLORASTOR [Concomitant]
  8. HUMALOG [Concomitant]
  9. LANTUS [Concomitant]
  10. LASIX [Concomitant]
  11. LIPITOR [Concomitant]
  12. METFORMIN [Concomitant]
  13. METOPROL [Concomitant]
  14. NEXIUM [Concomitant]
  15. PLAVIX [Concomitant]
  16. POTASSIUM [Concomitant]
  17. PREMPHASE [Concomitant]
  18. VITAMIN D [Concomitant]

REACTIONS (3)
  - Nausea [None]
  - Blood pressure increased [None]
  - Myocardial infarction [None]
